FAERS Safety Report 5050522-8 (Version None)
Quarter: 2006Q3

REPORT INFORMATION
  Report Type: 
  Country: None (occurrence: None)
  Receive Date: 20060707
  Receipt Date: 20060622
  Transmission Date: 20061208
  Serious: Yes (Other)
  Sender: FDA-Public Use
  Company Number: S06-FRA-02185-01

PATIENT
  Age: 55 Year
  Sex: Female

DRUGS (2)
  1. SEROPLEX (ESCITALOPRAM) [Suspect]
     Indication: DEPRESSION
     Dosage: 10 MG QD PO
     Route: 048
     Dates: start: 20060314
  2. EFFEXOR [Suspect]
     Dosage: 75 MG QD

REACTIONS (1)
  - GAMMA-GLUTAMYLTRANSFERASE INCREASED [None]
